FAERS Safety Report 25892966 (Version 2)
Quarter: 2025Q4

REPORT INFORMATION
  Report Type: Report from Study
  Country: TR (occurrence: TR)
  Receive Date: 20251007
  Receipt Date: 20251202
  Transmission Date: 20260119
  Serious: Yes (Hospitalization)
  Sender: ALEXION PHARMACEUTICALS
  Company Number: TR-ASTRAZENECA-202510TUR001107TR

PATIENT
  Sex: Female

DRUGS (2)
  1. SOLIRIS [Suspect]
     Active Substance: ECULIZUMAB
     Indication: Myasthenia gravis
     Dosage: 900 MILLIGRAM
  2. SOLIRIS [Suspect]
     Active Substance: ECULIZUMAB
     Dosage: 1200 MILLIGRAM, Q2W

REACTIONS (3)
  - C-reactive protein increased [Unknown]
  - Infection [Unknown]
  - Inappropriate schedule of product administration [Unknown]
